FAERS Safety Report 10164331 (Version 2)
Quarter: 2014Q2

REPORT INFORMATION
  Report Type: Spontaneous
  Country: US (occurrence: US)
  Receive Date: 20140510
  Receipt Date: 20140510
  Transmission Date: 20141212
  Serious: No
  Sender: FDA-Public Use
  Company Number: US-BRISTOL-MYERS SQUIBB COMPANY-20053385

PATIENT
  Age: 58 Year
  Sex: Male
  Weight: 102.94 kg

DRUGS (1)
  1. BYDUREON [Suspect]
     Indication: TYPE 2 DIABETES MELLITUS
     Route: 058

REACTIONS (4)
  - Constipation [Unknown]
  - Flatulence [Unknown]
  - Glycosylated haemoglobin increased [Unknown]
  - Weight increased [Unknown]
